FAERS Safety Report 24316549 (Version 3)
Quarter: 2024Q4

REPORT INFORMATION
  Report Type: Spontaneous
  Country: US (occurrence: US)
  Receive Date: 20240913
  Receipt Date: 20241122
  Transmission Date: 20250115
  Serious: Yes (Other)
  Sender: ROCHE
  Company Number: US-002147023-PHHY2015US074222

PATIENT
  Age: 83 Year
  Sex: Female

DRUGS (3)
  1. LUCENTIS [Suspect]
     Active Substance: RANIBIZUMAB
     Indication: Cystoid macular oedema
     Dosage: RIGHT EYE
     Route: 050
  2. LUCENTIS [Suspect]
     Active Substance: RANIBIZUMAB
     Indication: Retinal vein occlusion
  3. BETADINE [Concomitant]
     Active Substance: POVIDONE-IODINE
     Indication: Antibiotic prophylaxis
     Dosage: UNK
     Route: 065

REACTIONS (7)
  - Streptococcal infection [Unknown]
  - Endophthalmitis [Unknown]
  - Blindness [Unknown]
  - Eye pain [Unknown]
  - Hypopyon [Unknown]
  - Visual acuity reduced [Unknown]
  - Retinal vasculitis [Unknown]
